FAERS Safety Report 7684904-2 (Version None)
Quarter: 2011Q3

REPORT INFORMATION
  Report Type: 
  Country: None (occurrence: None)
  Receive Date: 20110816
  Receipt Date: 20110807
  Transmission Date: 20111222
  Serious: Yes (Other)
  Sender: FDA-Public Use
  Company Number: IL-GENZYME-CAMP-1001065

PATIENT
  Sex: Female

DRUGS (4)
  1. ALEMTUZUMAB [Suspect]
     Dosage: 12 MG, QD
     Route: 050
     Dates: start: 20100427, end: 20100428
  2. METHYLPREDNISOLONE [Concomitant]
     Indication: MULTIPLE SCLEROSIS
     Dosage: 1 G, QD
     Route: 050
     Dates: start: 20090419, end: 20090421
  3. ALEMTUZUMAB [Suspect]
     Indication: MULTIPLE SCLEROSIS
     Dosage: 12 MG, QD
     Route: 050
     Dates: start: 20090419, end: 20090423
  4. METHYLPREDNISOLONE [Concomitant]
     Dosage: 1 G, QD
     Route: 050
     Dates: start: 20100427, end: 20100428

REACTIONS (1)
  - MISCARRIAGE OF PARTNER [None]
